FAERS Safety Report 11261730 (Version 2)
Quarter: 2015Q3

REPORT INFORMATION
  Report Type: Spontaneous
  Country: US (occurrence: US)
  Receive Date: 20150710
  Receipt Date: 20150716
  Transmission Date: 20151125
  Serious: No
  Sender: FDA-Public Use
  Company Number: US-PFIZER INC-2015226860

PATIENT
  Age: 71 Year
  Sex: Female

DRUGS (1)
  1. IBRANCE [Suspect]
     Active Substance: PALBOCICLIB
     Indication: BREAST CANCER FEMALE
     Dosage: 125MG DAILY, CYCLIC (FOR 21 DAYS OUT OF 28 DAY CYCLE)
     Route: 048
     Dates: start: 20150703

REACTIONS (7)
  - Diarrhoea [Unknown]
  - Bronchitis [Unknown]
  - Feeling hot [Unknown]
  - Chills [Unknown]
  - Product use issue [Unknown]
  - Fatigue [Unknown]
  - Hot flush [Unknown]

NARRATIVE: CASE EVENT DATE: 201507
